FAERS Safety Report 24972396 (Version 1)
Quarter: 2025Q1

REPORT INFORMATION
  Report Type: Report from Study
  Country: US (occurrence: US)
  Receive Date: 20250215
  Receipt Date: 20250215
  Transmission Date: 20250409
  Serious: Yes (Other)
  Sender: ALEXION PHARMACEUTICALS
  Company Number: US-AstraZeneca-2020SF10034

PATIENT

DRUGS (2)
  1. NEXIUM [Suspect]
     Active Substance: ESOMEPRAZOLE MAGNESIUM
     Indication: Gastrooesophageal reflux disease
     Dosage: 40 MILLIGRAM, BID
  2. PRILOSEC [Suspect]
     Active Substance: OMEPRAZOLE MAGNESIUM

REACTIONS (12)
  - Neoplasm malignant [Unknown]
  - Pulmonary fibrosis [Unknown]
  - Regurgitation [Unknown]
  - Gastrooesophageal reflux disease [Unknown]
  - Cough [Not Recovered/Not Resolved]
  - Hypoacusis [Not Recovered/Not Resolved]
  - General physical health deterioration [Unknown]
  - Malaise [Unknown]
  - Fatigue [Unknown]
  - Systemic scleroderma [Unknown]
  - Gastrointestinal disorder [Unknown]
  - Product use issue [Not Recovered/Not Resolved]
